FAERS Safety Report 6202951-4 (Version None)
Quarter: 2009Q2

REPORT INFORMATION
  Report Type: 
  Country: None (occurrence: None)
  Receive Date: 20090519
  Receipt Date: 20090507
  Transmission Date: 20091009
  Serious: Yes (Other)
  Sender: FDA-Public Use
  Company Number: 2009AP001458

PATIENT
  Age: 56 Year
  Sex: Female

DRUGS (2)
  1. LAMOTRIGINE [Suspect]
     Indication: TEMPORAL LOBE EPILEPSY
     Dosage: 50 MG;QD; 25 MG; QD
  2. AMISULPRIDE (AMTSULPRIDE) [Suspect]
     Indication: SCHIZOAFFECTIVE DISORDER
     Dosage: 200 MG;BID; PO
     Route: 048
     Dates: start: 20070301

REACTIONS (9)
  - AGITATION [None]
  - BLOOD PRESSURE SYSTOLIC INCREASED [None]
  - CATATONIA [None]
  - DERMATITIS ALLERGIC [None]
  - DISEASE RECURRENCE [None]
  - NEUROLEPTIC MALIGNANT SYNDROME [None]
  - PARANOIA [None]
  - RESTLESSNESS [None]
  - TEMPORAL LOBE EPILEPSY [None]
